FAERS Safety Report 9157244 (Version 1)
Quarter: 2013Q1

REPORT INFORMATION
  Report Type: Spontaneous
  Country: US (occurrence: US)
  Receive Date: 20130312
  Receipt Date: 20130312
  Transmission Date: 20140127
  Serious: Yes (Hospitalization)
  Sender: FDA-Public Use
  Company Number: US-BRISTOL-MYERS SQUIBB COMPANY-17440264

PATIENT
  Age: 96 Year
  Sex: Male
  Weight: 60 kg

DRUGS (2)
  1. WARFARIN SODIUM [Suspect]
     Indication: ATRIAL FIBRILLATION
  2. ASPIRIN [Suspect]
     Dosage: TOOK ASPIRIN 325MG FOR 2WEEKS FOR A MONTH, AND NOW TWO 81 MG ASPIRIN TABLETS.

REACTIONS (2)
  - Cerebrovascular accident [Unknown]
  - Diarrhoea [Unknown]
